FAERS Safety Report 10596371 (Version 1)
Quarter: 2014Q4

REPORT INFORMATION
  Report Type: Report from Study
  Country: PE (occurrence: PE)
  Receive Date: 20141120
  Receipt Date: 20141120
  Transmission Date: 20150529
  Serious: Yes (Death)
  Sender: FDA-Public Use
  Company Number: PE-SA-2014SA159412

PATIENT
  Age: 23 Year
  Sex: Male

DRUGS (2)
  1. LANTUS [Suspect]
     Active Substance: INSULIN GLARGINE
     Indication: DIABETES MELLITUS
     Route: 030
     Dates: end: 20140422
  2. APIDRA [Suspect]
     Active Substance: INSULIN GLULISINE
     Indication: DIABETES MELLITUS
     Route: 030
     Dates: end: 20140422

REACTIONS (4)
  - Intestinal obstruction [Fatal]
  - Vomiting [Fatal]
  - Abdominal distension [Fatal]
  - Thrombosis [Fatal]

NARRATIVE: CASE EVENT DATE: 2014
